FAERS Safety Report 4592781-1 (Version None)
Quarter: 2005Q1

REPORT INFORMATION
  Report Type: 
  Country: None (occurrence: None)
  Receive Date: 20050222
  Receipt Date: 20050207
  Transmission Date: 20050727
  Serious: No
  Sender: FDA-Public Use
  Company Number: 10212

PATIENT
  Age: 6 Year
  Sex: Female

DRUGS (4)
  1. METHOTREXATE [Suspect]
     Dosage: 15 MG WEEKLY SC
     Route: 058
     Dates: start: 19980701, end: 20011105
  2. NAPROXEN [Suspect]
     Indication: JUVENILE ARTHRITIS
     Dosage: 175 MG BID PO
     Route: 048
  3. ONDANSETRON [Suspect]
     Dosage: PO
     Route: 048
  4. ETANERCEPT [Suspect]
     Indication: JUVENILE ARTHRITIS
     Dosage: 10 MG 2/WK SC
     Route: 058
     Dates: start: 20011105

REACTIONS (1)
  - ASPARTATE AMINOTRANSFERASE INCREASED [None]
